FAERS Safety Report 12088172 (Version 1)
Quarter: 2016Q1

REPORT INFORMATION
  Report Type: Spontaneous
  Country: US (occurrence: US)
  Receive Date: 20160218
  Receipt Date: 20160218
  Transmission Date: 20160526
  Serious: Yes (Death, Other)
  Sender: FDA-Public Use
  Company Number: US-AMGEN-USASP2016017500

PATIENT
  Age: 80 Year
  Sex: Male

DRUGS (1)
  1. IMLYGIC [Suspect]
     Active Substance: TALIMOGENE LAHERPAREPVEC
     Indication: MALIGNANT MELANOMA STAGE III
     Dosage: FULL 4 ML DOSE OF THE 106 PFU CONCENTRATION, UNK
     Route: 065
     Dates: start: 20160203

REACTIONS (4)
  - Death [Fatal]
  - Head injury [Unknown]
  - Mobility decreased [Unknown]
  - Fall [Unknown]

NARRATIVE: CASE EVENT DATE: 20160204
